FAERS Safety Report 22919091 (Version 2)
Quarter: 2023Q4

REPORT INFORMATION
  Report Type: Spontaneous
  Country: DE (occurrence: DE)
  Receive Date: 20230907
  Receipt Date: 20231213
  Transmission Date: 20240110
  Serious: Yes (Death, Hospitalization, Other)
  Sender: FDA-Public Use
  Company Number: DE-CELLTRION INC.-2023DE017477

PATIENT

DRUGS (2)
  1. RITUXIMAB [Suspect]
     Active Substance: RITUXIMAB
     Indication: Product used for unknown indication
     Dosage: 500 MG
     Route: 065
     Dates: start: 20220614
  2. RITUXIMAB [Suspect]
     Active Substance: RITUXIMAB
     Indication: Product used for unknown indication
     Route: 065

REACTIONS (5)
  - Idiopathic pulmonary fibrosis [Fatal]
  - Acute respiratory distress syndrome [Fatal]
  - Atrial fibrillation [Unknown]
  - Respiratory tract infection bacterial [Unknown]
  - Infection [Unknown]

NARRATIVE: CASE EVENT DATE: 20220801
